FAERS Safety Report 18990589 (Version 3)
Quarter: 2022Q2

REPORT INFORMATION
  Report Type: Spontaneous
  Country: US (occurrence: US)
  Receive Date: 20210310
  Receipt Date: 20220602
  Transmission Date: 20220721
  Serious: Yes (Hospitalization, Other)
  Sender: FDA-Public Use
  Company Number: US-GILEAD-2021-0519273

PATIENT
  Age: 44 Year
  Sex: Female
  Weight: 52.27 kg

DRUGS (45)
  1. VIREAD [Suspect]
     Active Substance: TENOFOVIR DISOPROXIL FUMARATE
     Indication: HIV infection
     Dosage: UNK
     Route: 048
     Dates: start: 2001
  2. VIREAD [Suspect]
     Active Substance: TENOFOVIR DISOPROXIL FUMARATE
     Dosage: UNK
     Route: 048
     Dates: start: 201207
  3. VIREAD [Suspect]
     Active Substance: TENOFOVIR DISOPROXIL FUMARATE
     Dosage: 300 MG, ONCE A WEEK ON FRI AFTER DIALYSIS
     Route: 048
  4. PREZISTA [Concomitant]
     Active Substance: DARUNAVIR ETHANOLATE
  5. NORVIR [Concomitant]
     Active Substance: RITONAVIR
  6. ISENTRESS [Concomitant]
     Active Substance: RALTEGRAVIR POTASSIUM
  7. EPIVIR [Concomitant]
     Active Substance: LAMIVUDINE
  8. CALCITRIOL [Concomitant]
     Active Substance: CALCITRIOL
  9. CALCIUM CITRATE [Concomitant]
     Active Substance: CALCIUM CITRATE
  10. COREG [Concomitant]
     Active Substance: CARVEDILOL
  11. LOSARTAN [Concomitant]
     Active Substance: LOSARTAN
  12. RENVELA [Concomitant]
     Active Substance: SEVELAMER CARBONATE
  13. COLACE [Concomitant]
     Active Substance: DOCUSATE SODIUM
  14. MOMETASONE FUROATE [Concomitant]
     Active Substance: MOMETASONE FUROATE
  15. FLUCONAZOLE [Concomitant]
     Active Substance: FLUCONAZOLE
  16. ISENTRESS [Concomitant]
     Active Substance: RALTEGRAVIR POTASSIUM
  17. LAMIVUDINE [Concomitant]
     Active Substance: LAMIVUDINE
  18. PROTOPIC [Concomitant]
     Active Substance: TACROLIMUS
  19. DIALYVITE [Concomitant]
     Active Substance: ASCORBIC ACID\BIOTIN\CALCIUM PANTOTHENATE\COBALAMIN\FOLIC ACID\NIACINAMIDE\PYRIDOXINE HYDROCHLORIDE\
  20. RALTEGRAVIR [Concomitant]
     Active Substance: RALTEGRAVIR
  21. EDURANT [Concomitant]
     Active Substance: RILPIVIRINE HYDROCHLORIDE
  22. ZEPATIER [Concomitant]
     Active Substance: ELBASVIR\GRAZOPREVIR
  23. ZOFRAN [Concomitant]
     Active Substance: ONDANSETRON HYDROCHLORIDE
  24. JULUCA [Concomitant]
     Active Substance: DOLUTEGRAVIR SODIUM\RILPIVIRINE HYDROCHLORIDE
  25. MIDODRINE [Concomitant]
     Active Substance: MIDODRINE
  26. RILPIVIRINE [Concomitant]
     Active Substance: RILPIVIRINE
  27. TIVICAY [Concomitant]
     Active Substance: DOLUTEGRAVIR SODIUM
  28. ACETAMINOPHEN [Concomitant]
     Active Substance: ACETAMINOPHEN
  29. CLONIDINE [Concomitant]
     Active Substance: CLONIDINE
  30. DIPHENHYDRAMINE [Concomitant]
     Active Substance: DIPHENHYDRAMINE
  31. IRON SUCROSE [Concomitant]
     Active Substance: IRON SUCROSE
  32. MIRCERA [Concomitant]
     Active Substance: METHOXY POLYETHYLENE GLYCOL-EPOETIN BETA
  33. AMLODIPINE [Concomitant]
     Active Substance: AMLODIPINE BESYLATE
  34. DIGOXIN [Concomitant]
     Active Substance: DIGOXIN
  35. ROSUVASTATIN ASTRA [Concomitant]
  36. SYMBICORT [Concomitant]
     Active Substance: BUDESONIDE\FORMOTEROL FUMARATE DIHYDRATE
  37. CYTOXAN [Concomitant]
     Active Substance: CYCLOPHOSPHAMIDE
  38. VELCADE [Concomitant]
     Active Substance: BORTEZOMIB
  39. FLAGYL [Concomitant]
     Active Substance: METRONIDAZOLE\METRONIDAZOLE HYDROCHLORIDE
  40. LIDOCAINE [Concomitant]
     Active Substance: LIDOCAINE
  41. VITAMIN B12 [Concomitant]
     Active Substance: CYANOCOBALAMIN
  42. VANCOMYCIN [Concomitant]
     Active Substance: VANCOMYCIN
  43. CEFEPIME [Concomitant]
     Active Substance: CEFEPIME HYDROCHLORIDE
  44. DICYCLOMINE [Concomitant]
     Active Substance: DICYCLOMINE HYDROCHLORIDE
  45. AVELOX [Concomitant]
     Active Substance: MOXIFLOXACIN HYDROCHLORIDE

REACTIONS (38)
  - End stage renal disease [Unknown]
  - Cardiac failure congestive [Unknown]
  - Interstitial lung disease [Unknown]
  - Pneumococcal bacteraemia [Unknown]
  - Pulmonary amyloidosis [Unknown]
  - Hypotension [Unknown]
  - Choking [Unknown]
  - Cardiac arrest [Unknown]
  - Thrombocytopenia [Unknown]
  - Dyspnoea at rest [Unknown]
  - Pneumonia [Unknown]
  - Hepatitis C [Unknown]
  - Productive cough [Unknown]
  - Cough [Unknown]
  - Pulmonary oedema [Unknown]
  - Amyloidosis [Unknown]
  - Anuria [Unknown]
  - Respiratory distress [Unknown]
  - Dyspnoea [Unknown]
  - Renal failure [Unknown]
  - Liver disorder [Unknown]
  - Anxiety [Not Recovered/Not Resolved]
  - Pain [Not Recovered/Not Resolved]
  - Pain in extremity [Unknown]
  - Anhedonia [Not Recovered/Not Resolved]
  - Emotional distress [Not Recovered/Not Resolved]
  - Weight decreased [Unknown]
  - Alpha 1 foetoprotein increased [Unknown]
  - Upper limb fracture [Unknown]
  - Arthralgia [Unknown]
  - Vitamin D deficiency [Unknown]
  - Dizziness [Unknown]
  - Dizziness [Unknown]
  - Troponin increased [Unknown]
  - Lung infiltration [Unknown]
  - Diarrhoea [Unknown]
  - Vomiting [Unknown]
  - Nausea [Unknown]

NARRATIVE: CASE EVENT DATE: 20140627
